FAERS Safety Report 7381113-1 (Version None)
Quarter: 2011Q1

REPORT INFORMATION
  Report Type: 
  Country: None (occurrence: None)
  Receive Date: 20110329
  Receipt Date: 20100809
  Transmission Date: 20110831
  Serious: No
  Sender: FDA-Public Use
  Company Number: US-AMGEN-KDL429759

PATIENT
  Sex: Male

DRUGS (5)
  1. METOCLOPRAMIDE [Concomitant]
     Dosage: UNK UNK, UNK
  2. SENSIPAR [Suspect]
     Indication: HYPERPARATHYROIDISM SECONDARY
     Dosage: 30 MG, QD
  3. LEVOTHYROXINE SODIUM [Concomitant]
     Dosage: UNK UNK, UNK
  4. PIOGLITAZONE HCL [Concomitant]
     Dosage: UNK UNK, UNK
  5. SENSIPAR [Suspect]
     Dosage: 15 MG, UNK

REACTIONS (2)
  - HYPERTENSION [None]
  - BLOOD CALCIUM DECREASED [None]
